FAERS Safety Report 9938061 (Version 1)
Quarter: 2014Q1

REPORT INFORMATION
  Report Type: Report from Study
  Country: US (occurrence: US)
  Receive Date: 20140303
  Receipt Date: 20140303
  Transmission Date: 20141002
  Serious: Yes (Death)
  Sender: FDA-Public Use
  Company Number: US-ACCORD-022131

PATIENT
  Sex: 0

DRUGS (1)
  1. TOPIRAMATE [Suspect]

REACTIONS (1)
  - Intentional overdose [Fatal]
